FAERS Safety Report 4740244-2 (Version None)
Quarter: 2005Q3

REPORT INFORMATION
  Report Type: 
  Country: None (occurrence: None)
  Receive Date: 20050810
  Receipt Date: 20050303
  Transmission Date: 20060218
  Serious: No
  Sender: FDA-Public Use
  Company Number: US-GLAXOSMITHKLINE-A0548692A

PATIENT
  Age: 80 Year
  Sex: Female

DRUGS (3)
  1. PAXIL [Suspect]
     Indication: DEPRESSION
     Dosage: 10MG PER DAY
     Route: 048
     Dates: end: 20041101
  2. ATENOLOL [Concomitant]
  3. DIOVAN [Concomitant]

REACTIONS (3)
  - DENTAL CARIES [None]
  - TOOTH DISORDER [None]
  - TOOTH LOSS [None]
